FAERS Safety Report 7978290-8 (Version None)
Quarter: 2011Q4

REPORT INFORMATION
  Report Type: 
  Country: None (occurrence: None)
  Receive Date: 20111214
  Receipt Date: 20111208
  Transmission Date: 20120403
  Serious: Yes (Other)
  Sender: FDA-Public Use
  Company Number: DE-PFIZER INC-2011300469

PATIENT
  Sex: Male

DRUGS (3)
  1. EMBOLEX [Suspect]
     Indication: PROPHYLAXIS
     Route: 058
  2. MARCUMAR [Concomitant]
  3. CLINDAMYCIN HCL [Suspect]

REACTIONS (1)
  - SWOLLEN TONGUE [None]
